FAERS Safety Report 18844669 (Version 3)
Quarter: 2022Q3

REPORT INFORMATION
  Report Type: Spontaneous
  Country: JP (occurrence: JP)
  Receive Date: 20210204
  Receipt Date: 20220714
  Transmission Date: 20221027
  Serious: Yes (Other)
  Sender: FDA-Public Use
  Company Number: JP-GSKNCCC-CASE-01135138_AE-39996

PATIENT

DRUGS (2)
  1. FLUTICASONE FUROATE\VILANTEROL TRIFENATATE [Suspect]
     Active Substance: FLUTICASONE FUROATE\VILANTEROL TRIFENATATE
     Indication: Chronic obstructive pulmonary disease
     Dosage: 100 ?G, QD
     Route: 055
  2. SPIRIVA [Concomitant]
     Active Substance: TIOTROPIUM BROMIDE MONOHYDRATE
     Dosage: UNK

REACTIONS (5)
  - Laryngeal injury [Recovering/Resolving]
  - Laryngeal haemorrhage [Recovering/Resolving]
  - Post-traumatic pain [Recovering/Resolving]
  - Sensation of foreign body [Recovering/Resolving]
  - Foreign body ingestion [Unknown]

NARRATIVE: CASE EVENT DATE: 20210129
